FAERS Safety Report 13452293 (Version 1)
Quarter: 2017Q2

REPORT INFORMATION
  Report Type: Spontaneous
  Country: CH (occurrence: CH)
  Receive Date: 20170418
  Receipt Date: 20170418
  Transmission Date: 20170830
  Serious: Yes (Other)
  Sender: FDA-Public Use
  Company Number: PHHY2017CH057634

PATIENT

DRUGS (3)
  1. QUININE [Suspect]
     Active Substance: QUININE
     Indication: PLASMODIUM FALCIPARUM INFECTION
     Route: 042
  2. ARTESUNATE [Suspect]
     Active Substance: ARTESUNATE
     Indication: PLASMODIUM FALCIPARUM INFECTION
     Route: 042
  3. ARTEMETHER+LUMEFANTRINE [Suspect]
     Active Substance: ARTEMETHER\LUMEFANTRINE
     Indication: PLASMODIUM FALCIPARUM INFECTION
     Route: 048

REACTIONS (4)
  - Dysmetria [Recovered/Resolved]
  - Cerebellar syndrome [Recovered/Resolved]
  - Ataxia [Recovered/Resolved]
  - Dysarthria [Recovered/Resolved]
